FAERS Safety Report 13131110 (Version 2)
Quarter: 2017Q1

REPORT INFORMATION
  Report Type: Spontaneous
  Country: JP (occurrence: JP)
  Receive Date: 20170119
  Receipt Date: 20170125
  Transmission Date: 20170428
  Serious: Yes (Hospitalization)
  Sender: FDA-Public Use
  Company Number: PHJP2017JP001812

PATIENT
  Age: 52 Year
  Sex: Female

DRUGS (1)
  1. ZYKADIA [Suspect]
     Active Substance: CERITINIB
     Indication: NON-SMALL CELL LUNG CANCER
     Dosage: UNK
     Route: 048

REACTIONS (4)
  - Cholangitis [Not Recovered/Not Resolved]
  - Blood bilirubin increased [Unknown]
  - Cholangitis [Recovered/Resolved]
  - Dilatation intrahepatic duct acquired [Unknown]
